FAERS Safety Report 8778189 (Version 1)
Quarter: 2012Q4

REPORT INFORMATION
  Report Type: 
  Country: US (occurrence: US)
  Receive Date: 20120912
  Receipt Date: 20120912
  Transmission Date: 20130627
  Serious: Yes (Hospitalization, Other)
  Sender: FDA-Public Use
  Company Number: US-ELI_LILLY_AND_COMPANY-US201209001251

PATIENT
  Age: 58 Year
  Sex: Female

DRUGS (10)
  1. DULOXETINE HYDROCHLORIDE [Suspect]
     Indication: DEPRESSION
     Dosage: 60 mg, qd
  2. DULOXETINE HYDROCHLORIDE [Suspect]
     Dosage: 90 mg, qd
  3. SUBOXONE [Concomitant]
     Dosage: 8 mg, qid
     Route: 060
  4. ACETAMINOPHEN [Concomitant]
     Dosage: 325 mg, prn not to exceed t tablets per day
  5. ASPIRIN [Concomitant]
  6. VALIUM [Concomitant]
  7. TRAZODONE [Concomitant]
  8. ATORVASTATIN [Concomitant]
     Dosage: 10 mg, qd
  9. ADVAIR [Concomitant]
     Indication: ASTHMA
  10. VENTOLIN                           /00139501/ [Concomitant]
     Indication: ASTHMA

REACTIONS (7)
  - Hepatic failure [Recovered/Resolved]
  - Hyperbilirubinaemia [Recovered/Resolved]
  - Hepatic encephalopathy [Recovered/Resolved]
  - Renal failure acute [Recovering/Resolving]
  - Hepatic steatosis [Unknown]
  - Depression [Unknown]
  - Anxiety [Unknown]
